FAERS Safety Report 7528684-X (Version None)
Quarter: 2011Q2

REPORT INFORMATION
  Report Type: 
  Country: None (occurrence: None)
  Receive Date: 20110531
  Receipt Date: 20110520
  Transmission Date: 20111010
  Serious: Yes (Other)
  Sender: FDA-Public Use
  Company Number: ACO_24576_2011

PATIENT
  Age: 75 Year
  Sex: Male
  Weight: 68.9 kg

DRUGS (5)
  1. OMEPRAZOLE [Concomitant]
  2. HYDROCHLOROTHIAZIDE [Concomitant]
  3. PEPTOBISMOL (BISMUTH SUBSALICYLATE) [Concomitant]
  4. AMPYRA [Suspect]
     Indication: GAIT DISTURBANCE
     Dosage: 10 MG, BID
     Dates: start: 20100101, end: 20100101
  5. LEVOTHYROXINE SODIUM [Concomitant]

REACTIONS (5)
  - DYSPEPSIA [None]
  - ASTHENIA [None]
  - WEIGHT DECREASED [None]
  - HELICOBACTER INFECTION [None]
  - AMNESIA [None]
